FAERS Safety Report 5049087-6 (Version None)
Quarter: 2006Q3

REPORT INFORMATION
  Report Type: 
  Country: None (occurrence: None)
  Receive Date: 20060706
  Receipt Date: 20060626
  Transmission Date: 20061208
  Serious: Yes (Hospitalization)
  Sender: FDA-Public Use
  Company Number: 2006070764

PATIENT
  Sex: Female

DRUGS (9)
  1. LYRICA [Suspect]
     Indication: TRIGEMINAL NEURALGIA
     Dosage: 600 MG (200 MG, 3 IN 1 D), ORAL
     Route: 048
     Dates: start: 20050814, end: 20051230
  2. NEURONTIN [Suspect]
     Indication: TRIGEMINAL NEURALGIA
     Dosage: ORAL
     Route: 048
     Dates: start: 20030301
  3. ZYRTEC [Suspect]
     Indication: DRUG USE FOR UNKNOWN INDICATION
     Dates: start: 20051203, end: 20051230
  4. ATARAX [Suspect]
     Indication: DRUG USE FOR UNKNOWN INDICATION
     Dates: end: 20051230
  5. PREDNISOLONE [Suspect]
     Indication: DRUG USE FOR UNKNOWN INDICATION
     Dates: start: 20051207, end: 20051230
  6. LANSOPRAZOLE [Suspect]
     Indication: DRUG USE FOR UNKNOWN INDICATION
     Dates: start: 20051207, end: 20051230
  7. ALL OTHER THERAPEUTIC PRODUCTS [Concomitant]
  8. ESCITALOPRAM OXALATE [Concomitant]
  9. CEFAXLEXIN [Concomitant]

REACTIONS (8)
  - COUGH [None]
  - DRUG INEFFECTIVE [None]
  - EAR INFECTION [None]
  - FEELING COLD [None]
  - FEELING HOT [None]
  - PRURITUS [None]
  - RASH GENERALISED [None]
  - TREMOR [None]
